FAERS Safety Report 4832379-0 (Version None)
Quarter: 2005Q4

REPORT INFORMATION
  Report Type: 
  Country: None (occurrence: None)
  Receive Date: 20051117
  Receipt Date: 20051117
  Transmission Date: 20060501
  Serious: Yes (Hospitalization)
  Sender: FDA-Public Use
  Company Number: None

PATIENT
  Age: 91 Year
  Sex: Male
  Weight: 51 kg

DRUGS (1)
  1. FLEET PHOSPHOSODA [Suspect]
     Indication: COLONOSCOPY
     Dosage: 15 ML EVERY 20 MIN X 3 OROPHARING
     Route: 049
     Dates: start: 20051114, end: 20051114

REACTIONS (5)
  - BLOOD PRESSURE DECREASED [None]
  - BLOOD PRESSURE IMMEASURABLE [None]
  - DYSPNOEA [None]
  - HEART RATE DECREASED [None]
  - OXYGEN SATURATION DECREASED [None]
